FAERS Safety Report 7332903-2 (Version None)
Quarter: 2011Q1

REPORT INFORMATION
  Report Type: 
  Country: None (occurrence: None)
  Receive Date: 20110228
  Receipt Date: 20110228
  Transmission Date: 20110831
  Serious: Yes (Congenital Anomaly)
  Sender: FDA-Public Use
  Company Number: None

PATIENT
  Age: 1 Day
  Sex: Male
  Weight: 0.92 kg

DRUGS (6)
  1. BYETTA [Suspect]
     Indication: TYPE 2 DIABETES MELLITUS
  2. CLINDAMYCIN [Concomitant]
  3. LEVOTHYROXINE [Concomitant]
  4. METFORMIN HCL [Concomitant]
  5. KEFLEX [Concomitant]
  6. VANCOMYCIN [Concomitant]

REACTIONS (3)
  - OESOPHAGEAL ATRESIA [None]
  - ACQUIRED TRACHEO-OESOPHAGEAL FISTULA [None]
  - CONGENITAL MUSCULOSKELETAL ANOMALY [None]
